FAERS Safety Report 13980962 (Version 1)
Quarter: 2017Q3

REPORT INFORMATION
  Report Type: Spontaneous
  Country: US (occurrence: US)
  Receive Date: 20170918
  Receipt Date: 20170918
  Transmission Date: 20171128
  Serious: No
  Sender: FDA-Public Use
  Company Number: US-TEVA-744314ACC

PATIENT
  Age: 73 Year
  Sex: Female
  Weight: 77.1 kg

DRUGS (6)
  1. FEXOFENADINE [Suspect]
     Active Substance: FEXOFENADINE\FEXOFENADINE HYDROCHLORIDE
     Indication: HYPERSENSITIVITY
     Dosage: 180 MILLIGRAM DAILY;
     Route: 048
     Dates: start: 201611, end: 2016
  2. RITALIN [Concomitant]
     Active Substance: METHYLPHENIDATE HYDROCHLORIDE
     Dates: start: 2010
  3. WELLBUTRIN [Concomitant]
     Active Substance: BUPROPION HYDROCHLORIDE
     Dates: start: 2010, end: 201612
  4. PROZAC [Concomitant]
     Active Substance: FLUOXETINE HYDROCHLORIDE
  5. PRILOSEC [Concomitant]
     Active Substance: OMEPRAZOLE MAGNESIUM
     Dates: start: 2010
  6. ALLERGEN EXTRACTS [Concomitant]
     Dates: start: 20161122

REACTIONS (3)
  - Vertigo [Recovered/Resolved]
  - Dizziness [Recovered/Resolved]
  - Drug administered to patient of inappropriate age [Unknown]

NARRATIVE: CASE EVENT DATE: 2016
